FAERS Safety Report 17470363 (Version 1)
Quarter: 2020Q1

REPORT INFORMATION
  Report Type: Spontaneous
  Country: US (occurrence: US)
  Receive Date: 20200227
  Receipt Date: 20200227
  Transmission Date: 20200409
  Serious: Yes (Other)
  Sender: FDA-Public Use
  Company Number: US-ALKERMES INC.-ALK-2020-000797

PATIENT
  Age: 39 Year
  Sex: Male
  Weight: 86.17 kg

DRUGS (7)
  1. VIVITROL [Suspect]
     Active Substance: NALTREXONE
     Dosage: 380 MG, UNK
     Route: 030
     Dates: start: 20191122, end: 20191122
  2. VIVITROL [Suspect]
     Active Substance: NALTREXONE
     Dosage: 380 MG, Q4WK
     Route: 030
     Dates: start: 20190927, end: 20190927
  3. VIVITROL [Suspect]
     Active Substance: NALTREXONE
     Dosage: 380 MG, Q4WK
     Route: 030
     Dates: start: 20191025, end: 20191025
  4. VIVITROL [Suspect]
     Active Substance: NALTREXONE
     Indication: DRUG DEPENDENCE
     Dosage: 380 MG, Q4WK
     Route: 030
     Dates: start: 20200214, end: 20200214
  5. VIVITROL [Suspect]
     Active Substance: NALTREXONE
     Dosage: 380 MG, QMO
     Route: 030
     Dates: start: 20191220, end: 20191220
  6. VIVITROL [Suspect]
     Active Substance: NALTREXONE
     Dosage: 380 MG, Q4WK
     Route: 030
     Dates: start: 20200117, end: 20200117
  7. TYLENOL [Concomitant]
     Active Substance: ACETAMINOPHEN
     Indication: PRODUCT USED FOR UNKNOWN INDICATION
     Dosage: UNK

REACTIONS (10)
  - Mycobacterium tuberculosis complex test positive [Unknown]
  - Wrong technique in product usage process [Recovered/Resolved]
  - Injection site pain [Unknown]
  - Injection site induration [Not Recovered/Not Resolved]
  - Injection site reaction [Not Recovered/Not Resolved]
  - Injection site bruising [Unknown]
  - Haematoma [Not Recovered/Not Resolved]
  - Injection site haemorrhage [Unknown]
  - Injection site abscess [Unknown]
  - Injection site mass [Not Recovered/Not Resolved]

NARRATIVE: CASE EVENT DATE: 2019
